FAERS Safety Report 5798047-6 (Version None)
Quarter: 2008Q3

REPORT INFORMATION
  Report Type: 
  Country: None (occurrence: None)
  Receive Date: 20080702
  Receipt Date: 20080625
  Transmission Date: 20090109
  Serious: Yes (Hospitalization)
  Sender: FDA-Public Use
  Company Number: DE-ASTRAZENECA-2008PK01367

PATIENT
  Age: 28676 Day
  Sex: Male
  Weight: 88 kg

DRUGS (4)
  1. SEROQUEL [Suspect]
     Indication: DEPRESSION
     Route: 048
     Dates: start: 20080414, end: 20080501
  2. SOLVEX [Concomitant]
     Route: 048
  3. AMILORID [Concomitant]
     Dosage: 5/50 MG 0.5 TBL DAILY
     Route: 048
  4. ALNA [Concomitant]
     Route: 048

REACTIONS (1)
  - RASH [None]
